FAERS Safety Report 5746469-1 (Version None)
Quarter: 2008Q2

REPORT INFORMATION
  Report Type: 
  Country: None (occurrence: None)
  Receive Date: 20080522
  Receipt Date: 20080516
  Transmission Date: 20081010
  Serious: Yes (Hospitalization)
  Sender: FDA-Public Use
  Company Number: B0521253A

PATIENT
  Sex: Female
  Weight: 71 kg

DRUGS (2)
  1. TOPOTECAN [Suspect]
     Dosage: 1.37MG PER DAY
     Route: 042
     Dates: start: 20080508
  2. CARBOPLATIN [Suspect]
     Dosage: 744.3MG PER DAY
     Route: 042
     Dates: start: 20080510

REACTIONS (4)
  - COUGH [None]
  - DEHYDRATION [None]
  - DRUG INEFFECTIVE [None]
  - UPPER RESPIRATORY TRACT INFECTION [None]
